FAERS Safety Report 6002600-4 (Version None)
Quarter: 2008Q4

REPORT INFORMATION
  Report Type: 
  Country: None (occurrence: None)
  Receive Date: 20081212
  Receipt Date: 20081201
  Transmission Date: 20090506
  Serious: Yes (Hospitalization)
  Sender: FDA-Public Use
  Company Number: ABX55-08-0472

PATIENT
  Age: 69 Year
  Sex: Male
  Weight: 81.6 kg

DRUGS (10)
  1. ABRAXANE [Suspect]
     Indication: METASTATIC MALIGNANT MELANOMA
     Dosage: LAST DOSE PRIOR TO SAE 15SEP08 307.5MG (307.5 MG), INTRAVENOUS
     Route: 042
     Dates: start: 20080724
  2. BEVACIZUMAB (BEVACIZUMAB) [Suspect]
     Indication: METASTATIC MALIGNANT MELANOMA
     Dosage: DATE OF LAST DOSE PRIOR TO SAE 15SEP08 873MG (873 MG), INTRAVENOUS
     Route: 042
     Dates: start: 20080724
  3. TOPAMAX [Concomitant]
  4. ELAVIL [Concomitant]
  5. LIPITOR [Concomitant]
  6. CELEBREX [Concomitant]
  7. PROZAC [Concomitant]
  8. PROTONIX [Concomitant]
  9. VICODIN [Concomitant]
  10. OXYCODONE HCL [Concomitant]

REACTIONS (13)
  - ASTHENIA [None]
  - ATRIAL FIBRILLATION [None]
  - BLOOD PRESSURE SYSTOLIC DECREASED [None]
  - CALCULUS URETERIC [None]
  - CHEST PAIN [None]
  - DEHYDRATION [None]
  - DYSPNOEA [None]
  - HAEMATOCRIT DECREASED [None]
  - HAEMOGLOBIN DECREASED [None]
  - PCO2 DECREASED [None]
  - PO2 INCREASED [None]
  - SUPRAVENTRICULAR TACHYCARDIA [None]
  - WHITE BLOOD CELL COUNT INCREASED [None]
